FAERS Safety Report 9572166 (Version 1)
Quarter: 2013Q3

REPORT INFORMATION
  Report Type: Spontaneous
  Country: US (occurrence: None)
  Receive Date: 20130930
  Receipt Date: 20130930
  Transmission Date: 20140515
  Serious: No
  Sender: FDA-Public Use
  Company Number: None

PATIENT
  Age: 57 Year
  Sex: Male
  Weight: 69.39 kg

DRUGS (1)
  1. ERBITUX [Suspect]
     Dosage: WEEK 7, 9/17/2013-HELD DOSE.

REACTIONS (3)
  - Radiation dysphagia [None]
  - Decreased appetite [None]
  - Odynophagia [None]
